FAERS Safety Report 6917176-4 (Version None)
Quarter: 2010Q3

REPORT INFORMATION
  Report Type: 
  Country: None (occurrence: None)
  Receive Date: 20100804
  Receipt Date: 20100727
  Transmission Date: 20110219
  Serious: Yes (Life-Threatening, Hospitalization, Other)
  Sender: FDA-Public Use
  Company Number: 009560

PATIENT
  Sex: Female
  Weight: 72 kg

DRUGS (10)
  1. CERTOLIZUMAB PEGOL (CERTOLIZUMAB PEGOL) [Suspect]
     Indication: RHEUMATOID ARTHRITIS
     Dosage: SEE IMAGE
     Route: 058
     Dates: start: 20050831, end: 20060816
  2. CERTOLIZUMAB PEGOL (CERTOLIZUMAB PEGOL) [Suspect]
     Indication: RHEUMATOID ARTHRITIS
     Dosage: SEE IMAGE
     Route: 058
     Dates: start: 20060829, end: 20100407
  3. CERTOLIZUMAB PEGOL (CERTOLIZUMAB PEGOL) [Suspect]
     Indication: RHEUMATOID ARTHRITIS
     Dosage: SEE IMAGE
     Route: 058
     Dates: start: 20100505
  4. PREDNISONE (07/17/2009 [Concomitant]
  5. EUTIROX /00068001/ [Concomitant]
  6. CLONAZEPAM [Concomitant]
  7. OMEPRAZOLE [Concomitant]
  8. FLUOXETINE [Concomitant]
  9. ATORVASTATIN [Concomitant]
  10. ASPIRIN [Concomitant]

REACTIONS (4)
  - GASTROENTERITIS [None]
  - INTERVERTEBRAL DISC DISORDER [None]
  - RADICULOPATHY [None]
  - SALMONELLOSIS [None]
